FAERS Safety Report 5564535-0 (Version None)
Quarter: 2007Q4

REPORT INFORMATION
  Report Type: 
  Country: None (occurrence: None)
  Receive Date: 20071213
  Receipt Date: 20071204
  Transmission Date: 20080405
  Serious: Yes (Death)
  Sender: FDA-Public Use
  Company Number: 2007-05520

PATIENT
  Age: 27 Year
  Sex: Male
  Weight: 172.3 kg

DRUGS (10)
  1. NORCO [Suspect]
     Indication: BACK PAIN
     Dosage: ^OFF/ON X5-6 Y^ UP TO 4TIMES/DAY, ORAL
     Route: 048
     Dates: start: 20010101, end: 20071123
  2. NORCO [Suspect]
     Indication: HEADACHE
     Dosage: ^OFF/ON X5-6 Y^ UP TO 4TIMES/DAY, ORAL
     Route: 048
     Dates: start: 20010101, end: 20071123
  3. MORPHINE SULFATE [Suspect]
     Indication: BACK PAIN
     Dosage: ORAL
     Route: 048
     Dates: end: 20071101
  4. MORPHINE SULFATE [Suspect]
     Indication: HEADACHE
     Dosage: ORAL
     Route: 048
     Dates: end: 20071101
  5. MORPHINE SULFATE [Suspect]
     Indication: BACK PAIN
     Dates: end: 20071101
  6. MORPHINE SULFATE [Suspect]
     Indication: HEADACHE
     Dates: end: 20071101
  7. XANAX [Suspect]
     Indication: DRUG USE FOR UNKNOWN INDICATION
     Dates: end: 20071101
  8. KLONOPIN [Suspect]
     Indication: DRUG USE FOR UNKNOWN INDICATION
     Dates: end: 20071101
  9. HYPERTENSIVE MEDS [Concomitant]
  10. ANTISEIZURE MEDS [Concomitant]

REACTIONS (9)
  - COMPLETED SUICIDE [None]
  - CONVULSION [None]
  - DRUG INEFFECTIVE [None]
  - FOAMING AT MOUTH [None]
  - HEADACHE [None]
  - LOSS OF CONSCIOUSNESS [None]
  - NECK PAIN [None]
  - OVERDOSE [None]
  - SNORING [None]
